FAERS Safety Report 17191226 (Version 1)
Quarter: 2019Q4

REPORT INFORMATION
  Report Type: Spontaneous
  Country: AT (occurrence: AT)
  Receive Date: 20191223
  Receipt Date: 20191223
  Transmission Date: 20200122
  Serious: Yes (Hospitalization)
  Sender: FDA-Public Use
  Company Number: AT-OXFORD PHARMACEUTICALS, LLC-2019OXF00178

PATIENT
  Age: 22 Year
  Sex: Male
  Weight: 90 kg

DRUGS (5)
  1. HYDROCHLOROTHIAZIDE. [Suspect]
     Active Substance: HYDROCHLOROTHIAZIDE
     Dosage: 12.5 MG
     Route: 065
  2. TRIAMTERENE. [Suspect]
     Active Substance: TRIAMTERENE
     Dosage: 25 MG
     Route: 065
  3. TRIAMTERENE. [Suspect]
     Active Substance: TRIAMTERENE
     Dosage: 175 MG
     Route: 065
  4. ANABOLIC STERIOIDS [Concomitant]
     Route: 065
  5. HYDROCHLOROTHIAZIDE. [Suspect]
     Active Substance: HYDROCHLOROTHIAZIDE
     Dosage: 87.5 MG
     Route: 065

REACTIONS (8)
  - Electrocardiogram QT prolonged [Not Recovered/Not Resolved]
  - Urinary retention [Recovered/Resolved]
  - Intentional product misuse [Recovered/Resolved]
  - Electrocardiogram U wave present [Unknown]
  - Hyperglycaemia [Unknown]
  - Electrocardiogram ST segment depression [Unknown]
  - Polycythaemia [Unknown]
  - Hypokalaemia [Recovered/Resolved]
